FAERS Safety Report 11991633 (Version 1)
Quarter: 2016Q1

REPORT INFORMATION
  Report Type: Spontaneous
  Country: US (occurrence: US)
  Receive Date: 20160203
  Receipt Date: 20160203
  Transmission Date: 20160526
  Serious: No
  Sender: FDA-Public Use
  Company Number: US-JNJFOC-20151217537

PATIENT
  Age: 72 Year
  Sex: Female
  Weight: 72.58 kg

DRUGS (4)
  1. MULTI VITAMIN [Concomitant]
     Active Substance: VITAMINS
     Indication: HYPOVITAMINOSIS
     Dosage: YEARS
     Route: 065
  2. PEPCID AC MAXIMUM STRENGTH [Suspect]
     Active Substance: FAMOTIDINE
     Route: 048
  3. PEPCID AC MAXIMUM STRENGTH [Suspect]
     Active Substance: FAMOTIDINE
     Indication: DYSPEPSIA
     Route: 048
  4. SIMVASTATIN. [Concomitant]
     Active Substance: SIMVASTATIN
     Indication: BLOOD CHOLESTEROL INCREASED
     Dosage: FOR 5 YEARS
     Route: 065

REACTIONS (1)
  - Drug effect incomplete [Unknown]
